FAERS Safety Report 19065625 (Version 1)
Quarter: 2021Q1

REPORT INFORMATION
  Report Type: Report from Study
  Country: BR (occurrence: BR)
  Receive Date: 20210327
  Receipt Date: 20210327
  Transmission Date: 20210420
  Serious: Yes (Hospitalization, Other)
  Sender: FDA-Public Use
  Company Number: BR-TAKEDA-2021TUS019017

PATIENT
  Age: 54 Year
  Sex: Female

DRUGS (1)
  1. HUMAN IMMUNOGLOBULIN; HYALURONIDASE [Suspect]
     Active Substance: HUMAN IMMUNOGLOBULIN G\HYALURONIDASE RECOMBINANT HUMAN
     Indication: PRODUCT USED FOR UNKNOWN INDICATION
     Dosage: 25 MILLIGRAM, 2/MONTH
     Route: 058

REACTIONS (10)
  - Syncope [Unknown]
  - Pain in extremity [Unknown]
  - Abdominal pain upper [Unknown]
  - Bone pain [Unknown]
  - Nausea [Unknown]
  - Pain [Unknown]
  - Fatigue [Unknown]
  - Back pain [Unknown]
  - Headache [Unknown]
  - Immunodeficiency [Unknown]
